FAERS Safety Report 8541952 (Version 3)
Quarter: 2012Q4

REPORT INFORMATION
  Report Type: Spontaneous
  Country: TW (occurrence: None)
  Receive Date: 20120424
  Receipt Date: 20120924
  Transmission Date: 20130627
  Serious: Yes (Hospitalization)
  Sender: FDA-Public Use
  Company Number: TW-007943

PATIENT
  Age: 82 Year
  Sex: Male
  Weight: 93 kg

DRUGS (5)
  1. DEGARELIX [Suspect]
     Indication: PROSTATE CANCER
     Route: 058
     Dates: start: 20120110, end: 20120110
  2. DEGARELIX [Suspect]
     Indication: PROSTATE CANCER
     Dosage: 1x/month
     Route: 058
     Dates: start: 20120209, end: 20120209
  3. NIFEDIPINE [Concomitant]
  4. ROSUVASTATIN CALCIUM [Concomitant]
  5. GLIMEPIRIDE [Concomitant]

REACTIONS (7)
  - Nephrotic syndrome [None]
  - Renal failure acute [None]
  - Focal segmental glomerulosclerosis [None]
  - Renal tubular necrosis [None]
  - Hypoalbuminaemia [None]
  - Scrotal swelling [None]
  - Oedema peripheral [None]
